FAERS Safety Report 22205643 (Version 1)
Quarter: 2023Q2

REPORT INFORMATION
  Report Type: Spontaneous
  Country: US (occurrence: US)
  Receive Date: 20230413
  Receipt Date: 20230413
  Transmission Date: 20230721
  Serious: No
  Sender: FDA-Public Use
  Company Number: US-BRISTOL-MYERS SQUIBB COMPANY-2023-052717

PATIENT
  Age: 49 Year
  Sex: Female

DRUGS (1)
  1. REVLIMID [Suspect]
     Active Substance: LENALIDOMIDE
     Indication: Plasmacytoma
     Dosage: FREQ: 1 DAILY FOR 21 DAYS ON, 7 DAYS OFF
     Route: 048
     Dates: start: 202212

REACTIONS (2)
  - Peripheral swelling [Unknown]
  - Off label use [Unknown]
